FAERS Safety Report 6115026-X (Version None)
Quarter: 2009Q1

REPORT INFORMATION
  Report Type: 
  Country: None (occurrence: None)
  Receive Date: 20090313
  Receipt Date: 20090306
  Transmission Date: 20090719
  Serious: Yes (Hospitalization)
  Sender: FDA-Public Use
  Company Number: A0772852A

PATIENT
  Age: 44 Year
  Sex: Male
  Weight: 113.6 kg

DRUGS (6)
  1. AVANDIA [Suspect]
     Indication: DIABETES MELLITUS
     Dosage: 8MG TWICE PER DAY
     Route: 048
     Dates: start: 20000101, end: 20070801
  2. METFORMIN HCL [Concomitant]
  3. INSULIN [Concomitant]
  4. METOPROLOL TARTRATE [Concomitant]
  5. ALTACE [Concomitant]
  6. LIPITOR [Concomitant]

REACTIONS (1)
  - MYOCARDIAL INFARCTION [None]
